FAERS Safety Report 18721406 (Version 5)
Quarter: 2021Q2

REPORT INFORMATION
  Report Type: Report from Study
  Country: CA (occurrence: CA)
  Receive Date: 20210109
  Receipt Date: 20210410
  Transmission Date: 20210717
  Serious: Yes (Death, Hospitalization, Other)
  Sender: FDA-Public Use
  Company Number: PHHY2012CA075150

PATIENT
  Age: 69 Year
  Sex: Male

DRUGS (18)
  1. SANDOSTATIN [Suspect]
     Active Substance: OCTREOTIDE ACETATE
     Dosage: 3 UG, QD
     Route: 058
     Dates: start: 20190415
  2. SANDOSTATIN LAR DEPOT [Suspect]
     Active Substance: OCTREOTIDE ACETATE
     Indication: METASTATIC CARCINOID TUMOUR
     Dosage: 30 MG, QMO (EVERY 4 WEEKS)
     Route: 030
     Dates: start: 20120928
  3. SANDOSTATIN LAR DEPOT [Suspect]
     Active Substance: OCTREOTIDE ACETATE
     Dosage: 30 MG, Q3W
     Route: 030
  4. TEMOZOLOMIDE. [Concomitant]
     Active Substance: TEMOZOLOMIDE
     Indication: PRODUCT USED FOR UNKNOWN INDICATION
     Dosage: 145 MG, BID (FOR 5 DAYS)
     Route: 065
     Dates: start: 20210206
  5. METOCLOPRAMIDE. [Concomitant]
     Active Substance: METOCLOPRAMIDE
     Indication: PRODUCT USED FOR UNKNOWN INDICATION
     Dosage: 10 MG, PRN
     Route: 065
  6. APO GRANISETRON [Concomitant]
     Indication: PRODUCT USED FOR UNKNOWN INDICATION
     Dosage: 1 MG, BID (FOR 5 DAYS)
     Route: 065
     Dates: start: 20210206
  7. OCTREOTID TEVA [Concomitant]
     Indication: CARCINOID TUMOUR
     Dosage: 3 DF, QD
     Route: 058
     Dates: start: 20200415
  8. SANDOSTATIN [Suspect]
     Active Substance: OCTREOTIDE ACETATE
     Indication: METASTATIC CARCINOID TUMOUR
     Dosage: 3 UG, QD
     Route: 058
     Dates: start: 20120821, end: 201209
  9. SANDOSTATIN [Suspect]
     Active Substance: OCTREOTIDE ACETATE
  10. COTAZYM [Concomitant]
     Active Substance: PANCRELIPASE AMYLASE\PANCRELIPASE LIPASE\PANCRELIPASE PROTEASE
     Indication: PRODUCT USED FOR UNKNOWN INDICATION
     Dosage: UNK
     Route: 065
  11. LOPERAMIDE [Concomitant]
     Active Substance: LOPERAMIDE
     Indication: DIARRHOEA
  12. OXYCODONE [Concomitant]
     Active Substance: OXYCODONE
     Dosage: 2.5 MG, PRN
     Route: 065
  13. CAPECITABINE. [Concomitant]
     Active Substance: CAPECITABINE
     Indication: PRODUCT USED FOR UNKNOWN INDICATION
     Dosage: 1150 MG, BID (FOR 14 DAYS)
     Route: 065
     Dates: start: 20210128
  14. LOPERAMIDE [Concomitant]
     Active Substance: LOPERAMIDE
     Indication: CARCINOID TUMOUR
     Dosage: 1 DF
     Route: 048
     Dates: start: 20200415
  15. SANDOSTATIN LAR DEPOT [Suspect]
     Active Substance: OCTREOTIDE ACETATE
     Dosage: UNK
     Route: 030
     Dates: start: 20170530
  16. ATENOLOL. [Concomitant]
     Active Substance: ATENOLOL
     Indication: PRODUCT USED FOR UNKNOWN INDICATION
     Dosage: 50 MG, QD
     Route: 065
  17. METOPROLOL. [Concomitant]
     Active Substance: METOPROLOL
     Indication: PRODUCT USED FOR UNKNOWN INDICATION
     Dosage: UNK
     Route: 065
  18. OXYCODONE [Concomitant]
     Active Substance: OXYCODONE
     Indication: PRODUCT USED FOR UNKNOWN INDICATION
     Dosage: 10 MG, Q12H
     Route: 065

REACTIONS (23)
  - Intestinal obstruction [Unknown]
  - Pain [Unknown]
  - Dizziness [Unknown]
  - Product administration error [Unknown]
  - Blood pressure systolic increased [Unknown]
  - Hypotension [Unknown]
  - Bladder disorder [Unknown]
  - Heart rate decreased [Unknown]
  - Wrong technique in product usage process [Unknown]
  - Neoplasm malignant [Unknown]
  - Blood pressure diastolic decreased [Unknown]
  - Dry throat [Unknown]
  - Abdominal pain upper [Unknown]
  - Death [Fatal]
  - Body temperature decreased [Unknown]
  - Injection site bruising [Unknown]
  - Injection site scar [Unknown]
  - Injection site pain [Unknown]
  - Diarrhoea [Recovering/Resolving]
  - Blood pressure increased [Unknown]
  - Scar [Unknown]
  - Needle issue [Unknown]
  - Injection site mass [Recovered/Resolved]

NARRATIVE: CASE EVENT DATE: 20140120
